FAERS Safety Report 7267672-8 (Version None)
Quarter: 2011Q1

REPORT INFORMATION
  Report Type: 
  Country: None (occurrence: None)
  Receive Date: 20110201
  Receipt Date: 20101116
  Transmission Date: 20110831
  Serious: Yes (Other)
  Sender: FDA-Public Use
  Company Number: GB-CELGENEUS-167-FK228-10112632

PATIENT

DRUGS (2)
  1. HEPARIN [Concomitant]
     Indication: THROMBOSIS
     Route: 065
  2. ROMIDEPSIN [Suspect]
     Route: 065

REACTIONS (7)
  - TROPONIN I INCREASED [None]
  - CARDIAC TAMPONADE [None]
  - TUMOUR LYSIS SYNDROME [None]
  - VENTRICULAR TACHYCARDIA [None]
  - PLEURAL EFFUSION [None]
  - ATRIOVENTRICULAR BLOCK [None]
  - HYPOALBUMINAEMIA [None]
